FAERS Safety Report 6120920-X (Version None)
Quarter: 2009Q1

REPORT INFORMATION
  Report Type: 
  Country: None (occurrence: None)
  Receive Date: 20090312
  Receipt Date: 20090217
  Transmission Date: 20090719
  Serious: Yes (Disabling)
  Sender: FDA-Public Use
  Company Number: JPI-P-002930

PATIENT
  Age: 44 Year
  Sex: Female

DRUGS (18)
  1. XYREM [Suspect]
     Indication: NARCOLEPSY
     Dosage: SEE IMAGE
     Route: 048
     Dates: start: 20071215, end: 20071201
  2. XYREM [Suspect]
     Indication: NARCOLEPSY
     Dosage: SEE IMAGE
     Route: 048
     Dates: end: 20080228
  3. XYREM [Suspect]
     Indication: NARCOLEPSY
     Dosage: SEE IMAGE
     Route: 048
     Dates: start: 20080229, end: 20080328
  4. XYREM [Suspect]
     Indication: NARCOLEPSY
     Dosage: SEE IMAGE
     Route: 048
     Dates: start: 20080229, end: 20080328
  5. XYREM [Suspect]
     Indication: NARCOLEPSY
     Dosage: SEE IMAGE
     Route: 048
     Dates: start: 20080329, end: 20080331
  6. XYREM [Suspect]
     Indication: NARCOLEPSY
     Dosage: SEE IMAGE
     Route: 048
     Dates: start: 20080329, end: 20080331
  7. XYREM [Suspect]
     Indication: NARCOLEPSY
     Dosage: SEE IMAGE
     Route: 048
     Dates: start: 20080401, end: 20080404
  8. XYREM [Suspect]
     Indication: NARCOLEPSY
     Dosage: SEE IMAGE
     Route: 048
     Dates: start: 20080405, end: 20080425
  9. XYREM [Suspect]
     Indication: NARCOLEPSY
     Dosage: SEE IMAGE
     Route: 048
     Dates: start: 20080405, end: 20080425
  10. XYREM [Suspect]
     Indication: NARCOLEPSY
     Dosage: SEE IMAGE
     Route: 048
     Dates: start: 20080426, end: 20080427
  11. XYREM [Suspect]
     Indication: NARCOLEPSY
     Dosage: SEE IMAGE
     Route: 048
     Dates: start: 20080428, end: 20080505
  12. XYREM [Suspect]
     Indication: NARCOLEPSY
     Dosage: SEE IMAGE
     Route: 048
     Dates: start: 20080428, end: 20080505
  13. XYREM [Suspect]
     Indication: NARCOLEPSY
     Dosage: SEE IMAGE
     Route: 048
     Dates: start: 20071201
  14. XYREM [Suspect]
     Indication: NARCOLEPSY
     Dosage: SEE IMAGE
     Route: 048
     Dates: start: 20080506
  15. MODAFINIL [Concomitant]
  16. ESCITALOPRAM OXALATE [Concomitant]
  17. LEVOTHYROXINE SODIUM [Concomitant]
  18. ELETRIPTAN HYDROBROMIDE [Concomitant]

REACTIONS (17)
  - ASTHENIA [None]
  - DEAFNESS [None]
  - DISCOMFORT [None]
  - DISEASE PROGRESSION [None]
  - DIZZINESS [None]
  - EXTRASYSTOLES [None]
  - FEELING ABNORMAL [None]
  - HEADACHE [None]
  - MYOPIA [None]
  - NAUSEA [None]
  - NIGHT SWEATS [None]
  - PRESBYOPIA [None]
  - SNORING [None]
  - SOMNOLENCE [None]
  - TREMOR [None]
  - VOMITING [None]
  - WEIGHT INCREASED [None]
